FAERS Safety Report 9338147 (Version 1)
Quarter: 2013Q2

REPORT INFORMATION
  Report Type: Report from Study
  Country: CL (occurrence: CL)
  Receive Date: 20130610
  Receipt Date: 20130610
  Transmission Date: 20140414
  Serious: Yes (Other)
  Sender: FDA-Public Use
  Company Number: CL-ROCHE-1234464

PATIENT
  Age: 69 Year
  Sex: Female
  Weight: 74 kg

DRUGS (2)
  1. XELODA [Suspect]
     Indication: COLON CANCER
     Route: 048
     Dates: start: 20120928, end: 20130515
  2. OXALIPLATINO [Suspect]
     Indication: COLON CANCER
     Route: 042
     Dates: start: 20120928, end: 20130502

REACTIONS (2)
  - Neoplasm [Unknown]
  - Drug ineffective [Unknown]
